FAERS Safety Report 5098776-6 (Version None)
Quarter: 2006Q3

REPORT INFORMATION
  Report Type: 
  Country: None (occurrence: None)
  Receive Date: 20060907
  Receipt Date: 20060825
  Transmission Date: 20061208
  Serious: Yes (Hospitalization)
  Sender: FDA-Public Use
  Company Number: CA-AMGEN-US191531

PATIENT
  Age: 12 Year
  Sex: Male
  Weight: 46.5 kg

DRUGS (4)
  1. KINERET [Suspect]
     Indication: JUVENILE ARTHRITIS
     Route: 058
     Dates: start: 20060707, end: 20060806
  2. PREDNISONE TAB [Concomitant]
  3. METHOTREXATE [Concomitant]
  4. INDOMETHACIN [Concomitant]

REACTIONS (3)
  - ARTHRITIS BACTERIAL [None]
  - BETA HAEMOLYTIC STREPTOCOCCAL INFECTION [None]
  - CELLULITIS [None]
